FAERS Safety Report 5728344-1 (Version None)
Quarter: 2008Q2

REPORT INFORMATION
  Report Type: 
  Country: None (occurrence: None)
  Receive Date: 20080430
  Receipt Date: 20071102
  Transmission Date: 20081010
  Serious: Yes (Other)
  Sender: FDA-Public Use
  Company Number: SMFE-78WP3S

PATIENT
  Sex: Male

DRUGS (1)
  1. DURAPREP [Suspect]
     Indication: PREOPERATIVE CARE
     Dosage: TOPICAL
     Route: 061

REACTIONS (1)
  - SKIN EXFOLIATION [None]
